FAERS Safety Report 9782353 (Version 1)
Quarter: 2013Q4

REPORT INFORMATION
  Report Type: Report from Study
  Country: KR (occurrence: KR)
  Receive Date: 20131226
  Receipt Date: 20131226
  Transmission Date: 20140711
  Serious: No
  Sender: FDA-Public Use
  Company Number: PHHY2013KR149947

PATIENT
  Age: 63 Year
  Sex: Female

DRUGS (14)
  1. AMN107 [Suspect]
     Indication: CHRONIC MYELOID LEUKAEMIA
     Dosage: 600 MG, PER DAY
     Route: 048
     Dates: start: 20130917
  2. ALDACTONE [Concomitant]
     Indication: PLEURAL EFFUSION
     Dosage: 50 MG, UNK
     Route: 048
     Dates: start: 20130806, end: 20131103
  3. ALDACTONE [Concomitant]
     Dosage: 25 MG, UNK
     Route: 048
     Dates: start: 20131104
  4. AMARYL [Concomitant]
     Indication: DIABETES MELLITUS
     Dosage: 8 MG, UNK
     Route: 048
     Dates: start: 2004
  5. DEPAS [Concomitant]
     Indication: INSOMNIA
     Dosage: 1 MG, UNK
     Route: 048
     Dates: start: 2007
  6. DILATREND [Concomitant]
     Indication: HYPERTENSION
     Dosage: 6.25 MG, UNK
     Route: 048
     Dates: start: 20131022
  7. ETRAVIL [Concomitant]
     Indication: INSOMNIA
     Dosage: 20 MG, UNK
     Route: 048
     Dates: start: 2007
  8. FOLATE [Concomitant]
     Indication: PROPHYLAXIS
     Dosage: 2 MG, UNK
     Route: 048
     Dates: start: 20130806
  9. GLUCOPHAGE [Concomitant]
     Indication: DIABETES MELLITUS
     Dosage: 1000 MG, UNK
     Route: 048
     Dates: start: 2004
  10. MECOBALAMIN [Concomitant]
     Indication: PROPHYLAXIS
     Dosage: 1000 UG, UNK
     Route: 048
     Dates: start: 20130806
  11. NORVASC [Concomitant]
     Indication: HYPERTENSION
     Dosage: 5 MG, UNK
     Route: 048
     Dates: start: 2004
  12. TORSEMIDE [Concomitant]
     Indication: PLEURAL EFFUSION
     Dosage: 10 MG, UNK
     Route: 048
     Dates: start: 20130806, end: 20130923
  13. TORSEMIDE [Concomitant]
     Dosage: 20 MG, UNK
     Route: 048
     Dates: start: 20131001, end: 20131202
  14. TORSEMIDE [Concomitant]
     Dosage: 10 MG, UNK
     Route: 048
     Dates: start: 20131203

REACTIONS (1)
  - Abdominal pain upper [Recovered/Resolved]
